FAERS Safety Report 4275335-6 (Version None)
Quarter: 2004Q1

REPORT INFORMATION
  Report Type: 
  Country: None (occurrence: None)
  Receive Date: 20040116
  Receipt Date: 20040105
  Transmission Date: 20041129
  Serious: Yes (Hospitalization, Other)
  Sender: FDA-Public Use
  Company Number: US-SHR-03-015600

PATIENT
  Age: 61 Year
  Sex: Female
  Weight: 89.6 kg

DRUGS (10)
  1. FLUDARA [Suspect]
     Indication: CHRONIC LYMPHOCYTIC LEUKAEMIA
     Dosage: 50 MG DAILY (DAYS 1-5), INTRAVENOUS
     Route: 042
     Dates: start: 20030915, end: 20030919
  2. RITUXAN [Suspect]
     Indication: CHRONIC LYMPHOCYTIC LEUKAEMIA
     Dosage: 750 MG DAILY (DAYS 1-4), INTRAVENOUS
     Route: 042
     Dates: start: 20030915, end: 20030918
  3. AMARYL [Concomitant]
  4. ZOFRAN [Concomitant]
  5. SEPTRA DS [Concomitant]
  6. FAMVIR [Concomitant]
  7. ALLOPURINOL [Concomitant]
  8. TYLENOL [Concomitant]
  9. BENADRYL [Concomitant]
  10. PEGFILGRASTIM (PEGFILGRASTIM) [Concomitant]

REACTIONS (13)
  - ANAEMIA [None]
  - ANOREXIA [None]
  - ASTHENIA [None]
  - B-CELL SMALL LYMPHOCYTIC LYMPHOMA [None]
  - BLOOD GLUCOSE INCREASED [None]
  - BONE MARROW TRANSPLANT [None]
  - DISEASE PROGRESSION [None]
  - FATIGUE [None]
  - HYPERCALCAEMIA [None]
  - MALAISE [None]
  - MUSCULAR WEAKNESS [None]
  - SINUS TACHYCARDIA [None]
  - THROMBOCYTOPENIA [None]
